FAERS Safety Report 11279100 (Version 1)
Quarter: 2015Q3

REPORT INFORMATION
  Report Type: Report from Study
  Country: GB (occurrence: GB)
  Receive Date: 20150717
  Receipt Date: 20150717
  Transmission Date: 20151125
  Serious: Yes (Death, Life-Threatening)
  Sender: FDA-Public Use
  Company Number: GB-B.I. PHARMACEUTICALS,INC./RIDGEFIELD-2015-BI-25275BI

PATIENT
  Age: 72 Year
  Sex: Female
  Weight: 59 kg

DRUGS (2)
  1. BI 655075 [Suspect]
     Active Substance: IDARUCIZUMAB
     Indication: COAGULATION TIME SHORTENED
     Dosage: 5 G
     Route: 042
     Dates: start: 20150510, end: 20150510
  2. PRADAXA [Suspect]
     Active Substance: DABIGATRAN ETEXILATE MESYLATE
     Indication: ATRIAL FIBRILLATION
     Dosage: 300 MG
     Route: 048
     Dates: start: 20130324

REACTIONS (5)
  - Renal haemorrhage [Fatal]
  - Thyroid haemorrhage [Fatal]
  - Cardiac arrest [Recovered/Resolved]
  - Intestinal haemorrhage [Fatal]
  - Renal failure [Unknown]

NARRATIVE: CASE EVENT DATE: 20150509
